FAERS Safety Report 14497065 (Version 6)
Quarter: 2020Q2

REPORT INFORMATION
  Report Type: Spontaneous
  Country: JP (occurrence: JP)
  Receive Date: 20180207
  Receipt Date: 20200624
  Transmission Date: 20200713
  Serious: Yes (Life-Threatening, Hospitalization)
  Sender: FDA-Public Use
  Company Number: JP-ASTRAZENECA-2018SE15284

PATIENT
  Age: 66 Year
  Sex: Male
  Weight: 62 kg

DRUGS (11)
  1. RAMELTEON [Concomitant]
     Active Substance: RAMELTEON
     Indication: DEPRESSION
  2. SEROQUEL [Suspect]
     Active Substance: QUETIAPINE FUMARATE
     Indication: SCHIZOPHRENIA
     Dosage: 12.5MG UNKNOWN
     Route: 048
     Dates: start: 201707
  3. SEROQUEL [Suspect]
     Active Substance: QUETIAPINE FUMARATE
     Indication: DELIRIUM
     Dosage: 12.5MG UNKNOWN
     Route: 048
     Dates: start: 201707
  4. SUVOREXANT. [Concomitant]
     Active Substance: SUVOREXANT
     Indication: DEPRESSION
  5. SEROQUEL [Suspect]
     Active Substance: QUETIAPINE FUMARATE
     Indication: ANXIETY DISORDER
     Dosage: 12.5MG UNKNOWN
     Route: 048
     Dates: start: 201707
  6. PAROXETINE. [Concomitant]
     Active Substance: PAROXETINE
     Indication: DEPRESSION
  7. TIAPRIDE [Concomitant]
     Active Substance: TIAPRIDE
     Indication: DEPRESSION
  8. SEROQUEL [Suspect]
     Active Substance: QUETIAPINE FUMARATE
     Indication: DELIRIUM
     Dosage: 25 MG UNKNOWN
     Route: 048
     Dates: start: 201708
  9. MIANSERIN [Concomitant]
     Active Substance: MIANSERIN
     Indication: DEPRESSION
  10. SEROQUEL [Suspect]
     Active Substance: QUETIAPINE FUMARATE
     Indication: SCHIZOPHRENIA
     Dosage: 25 MG UNKNOWN
     Route: 048
     Dates: start: 201708
  11. SEROQUEL [Suspect]
     Active Substance: QUETIAPINE FUMARATE
     Indication: ANXIETY DISORDER
     Dosage: 25 MG UNKNOWN
     Route: 048
     Dates: start: 201708

REACTIONS (6)
  - Diabetes mellitus [Unknown]
  - Product use in unapproved indication [Unknown]
  - Intestinal ischaemia [Recovering/Resolving]
  - Diabetic ketoacidosis [Recovering/Resolving]
  - Gastrointestinal necrosis [Unknown]
  - Off label use [Unknown]

NARRATIVE: CASE EVENT DATE: 20180130
